FAERS Safety Report 12302325 (Version 1)
Quarter: 2016Q2

REPORT INFORMATION
  Report Type: Spontaneous
  Country: US (occurrence: US)
  Receive Date: 20160425
  Receipt Date: 20160425
  Transmission Date: 20160815
  Serious: Yes (Other)
  Sender: FDA-Public Use
  Company Number: US-TEVA-653855USA

PATIENT
  Sex: Female
  Weight: 74.91 kg

DRUGS (2)
  1. CLONIDINE HCL [Concomitant]
     Active Substance: CLONIDINE HYDROCHLORIDE
  2. ATENOLOL. [Suspect]
     Active Substance: ATENOLOL
     Indication: BLOOD PRESSURE MEASUREMENT
     Route: 065

REACTIONS (5)
  - Local swelling [Unknown]
  - Soft tissue disorder [Unknown]
  - Blood pressure increased [Unknown]
  - Pharyngeal oedema [Unknown]
  - Somnolence [Unknown]
